FAERS Safety Report 20493380 (Version 4)
Quarter: 2022Q2

REPORT INFORMATION
  Report Type: Report from Study
  Country: US (occurrence: US)
  Receive Date: 20220220
  Receipt Date: 20220502
  Transmission Date: 20220720
  Serious: Yes (Hospitalization, Other)
  Sender: FDA-Public Use
  Company Number: US-BIOGEN-2022BI01097758

PATIENT
  Sex: Female

DRUGS (1)
  1. TYSABRI [Suspect]
     Active Substance: NATALIZUMAB
     Indication: Multiple sclerosis
     Dosage: INFUSED OVER 1 HOUR
     Route: 065
     Dates: start: 20160420, end: 20210611

REACTIONS (5)
  - Blood pressure inadequately controlled [Unknown]
  - Blood creatinine increased [Unknown]
  - Renal failure [Unknown]
  - Multiple sclerosis [Unknown]
  - Vein disorder [Unknown]
